FAERS Safety Report 4624578-8 (Version None)
Quarter: 2005Q1

REPORT INFORMATION
  Report Type: 
  Country: None (occurrence: None)
  Receive Date: 20050107
  Receipt Date: 20041112
  Transmission Date: 20050727
  Serious: No
  Sender: FDA-Public Use
  Company Number: 235590K04USA

PATIENT
  Age: 42 Year
  Sex: Female

DRUGS (2)
  1. REBIF [Suspect]
     Dosage: SEE IMAGE
     Route: 058
     Dates: start: 20040920
  2. REBIF [Suspect]
     Dosage: SEE IMAGE
     Route: 058
     Dates: start: 20041001

REACTIONS (6)
  - DYSKINESIA [None]
  - HYPERHIDROSIS [None]
  - INJECTION SITE ERYTHEMA [None]
  - INJECTION SITE REACTION [None]
  - MYALGIA [None]
  - PAIN [None]
